FAERS Safety Report 6307191-6 (Version None)
Quarter: 2009Q3

REPORT INFORMATION
  Report Type: 
  Country: None (occurrence: None)
  Receive Date: 20090813
  Receipt Date: 20090806
  Transmission Date: 20100115
  Serious: Yes (Hospitalization, Other)
  Sender: FDA-Public Use
  Company Number: US-BIOGENIDEC-2009BI023260

PATIENT
  Sex: Female

DRUGS (22)
  1. AVONEX [Suspect]
     Indication: MULTIPLE SCLEROSIS
     Route: 030
  2. AVONEX [Suspect]
     Route: 030
  3. LORTAB [Concomitant]
  4. PREDNISONE [Concomitant]
  5. PREDNISONE [Concomitant]
  6. OMEPRAZOLE [Concomitant]
  7. KLOR-CON [Concomitant]
  8. KLOR-CON [Concomitant]
  9. LASIX [Concomitant]
  10. LASIX [Concomitant]
  11. CARVEDILOL [Concomitant]
  12. IMDUR [Concomitant]
  13. BACLOFEN [Concomitant]
  14. REQUIP [Concomitant]
  15. GABAPENTIN [Concomitant]
  16. GABAPENTIN [Concomitant]
  17. TRICOR [Concomitant]
  18. ZETIA [Concomitant]
  19. LISINOPRIL [Concomitant]
  20. CITALOPRAM HYDROBROMIDE [Concomitant]
  21. IBUPROFEN [Concomitant]
  22. TOPAMAX [Concomitant]

REACTIONS (4)
  - CARDIAC FAILURE CONGESTIVE [None]
  - CONTUSION [None]
  - FALL [None]
  - URINARY TRACT INFECTION [None]
